FAERS Safety Report 10245934 (Version 1)
Quarter: 2014Q2

REPORT INFORMATION
  Report Type: Spontaneous
  Country: US (occurrence: None)
  Receive Date: 20140616
  Receipt Date: 20140616
  Transmission Date: 20141212
  Serious: Yes (Disabling, Other)
  Sender: FDA-Public Use
  Company Number: None

PATIENT
  Age: 75 Year
  Sex: Female
  Weight: 63.5 kg

DRUGS (14)
  1. OMEPRAZOLE DR [Suspect]
     Indication: DYSPEPSIA
     Route: 048
     Dates: start: 20080516, end: 20130503
  2. LISINOPRIL [Concomitant]
  3. LIPATOR [Concomitant]
  4. XANAX [Concomitant]
  5. BRACE [Concomitant]
  6. CANE [Concomitant]
  7. 1 A DAY VIT [Concomitant]
  8. CALCIUM [Concomitant]
  9. VIT D [Concomitant]
  10. TRAMADOL [Concomitant]
  11. BRACE (TLSO) [Concomitant]
  12. CANE [Concomitant]
  13. ASPIRIN [Concomitant]
  14. TYLENOL [Concomitant]

REACTIONS (2)
  - Injury [None]
  - Spinal fracture [None]
